FAERS Safety Report 6183336-6 (Version None)
Quarter: 2009Q2

REPORT INFORMATION
  Report Type: 
  Country: None (occurrence: None)
  Receive Date: 20090506
  Receipt Date: 20090421
  Transmission Date: 20091009
  Serious: Yes (Hospitalization, Other)
  Sender: FDA-Public Use
  Company Number: 2009S1005753

PATIENT
  Age: 56 Year
  Sex: Female

DRUGS (2)
  1. AMISULPRIDE (AMISULPRIDE) [Suspect]
     Indication: SCHIZOAFFECTIVE DISORDER
     Dosage: 200 MG; TWICE A DAY;
  2. LAMOTRIGINE [Suspect]
     Indication: TEMPORAL LOBE EPILEPSY
     Dosage: 25 MG; DAILY, 50 MG; DAILY

REACTIONS (4)
  - CATATONIA [None]
  - DERMATITIS ALLERGIC [None]
  - NEUROLEPTIC MALIGNANT SYNDROME [None]
  - TEMPORAL LOBE EPILEPSY [None]
